FAERS Safety Report 25114699 (Version 1)
Quarter: 2025Q1

REPORT INFORMATION
  Report Type: Spontaneous
  Country: CO (occurrence: CO)
  Receive Date: 20250324
  Receipt Date: 20250324
  Transmission Date: 20250409
  Serious: Yes (Other)
  Sender: BIOMARIN
  Company Number: CO-BIOMARINAP-CO-2025-164766

PATIENT

DRUGS (1)
  1. VIMIZIM [Suspect]
     Active Substance: ELOSULFASE ALFA
     Indication: Mucopolysaccharidosis IV
     Dosage: 80 MILLIGRAM, QW
     Route: 042
     Dates: start: 20150420

REACTIONS (5)
  - Scoliosis [Unknown]
  - Spinal deformity [Unknown]
  - Kyphosis [Unknown]
  - Spinal flattening [Unknown]
  - Bone density decreased [Unknown]

NARRATIVE: CASE EVENT DATE: 20250214
